FAERS Safety Report 4356827-8 (Version None)
Quarter: 2004Q2

REPORT INFORMATION
  Report Type: 
  Country: None (occurrence: None)
  Receive Date: 20040507
  Receipt Date: 20040422
  Transmission Date: 20050107
  Serious: Yes (Other)
  Sender: FDA-Public Use
  Company Number: CA-JNJFOC-20040402217

PATIENT
  Age: 12 Year
  Sex: Male
  Weight: 43.0917 kg

DRUGS (1)
  1. CONCERTA [Suspect]
     Indication: ATTENTION DEFICIT/HYPERACTIVITY DISORDER
     Dosage: 54 MG, 1 IN 1 DAY, ORAL
     Route: 048
     Dates: start: 20031101

REACTIONS (2)
  - ANOREXIA [None]
  - WEIGHT DECREASED [None]
